FAERS Safety Report 4262081-8 (Version None)
Quarter: 2004Q1

REPORT INFORMATION
  Report Type: 
  Country: None (occurrence: None)
  Receive Date: 20040102
  Receipt Date: 20031219
  Transmission Date: 20041129
  Serious: Yes (Hospitalization)
  Sender: FDA-Public Use
  Company Number: JP-GLAXOSMITHKLINE-B0318520A

PATIENT
  Age: 45 Year
  Sex: Male

DRUGS (5)
  1. RANITIDINE HCL [Suspect]
     Indication: GASTRIC ULCER
     Dosage: 150MG PER DAY
     Route: 048
     Dates: start: 20031119
  2. POLAPREZINC [Suspect]
     Indication: GASTRIC ULCER
     Dosage: 1MG PER DAY
     Route: 048
     Dates: start: 20031119, end: 20031130
  3. NORFLOXACIN [Suspect]
     Dates: start: 20031130
  4. COLD MEDICINE [Concomitant]
     Route: 048
     Dates: start: 20031130
  5. DOMPERIDONE [Concomitant]
     Dates: start: 20031130

REACTIONS (4)
  - DYSPNOEA [None]
  - EXANTHEM [None]
  - HEPATIC FUNCTION ABNORMAL [None]
  - PYREXIA [None]
